FAERS Safety Report 22130862 (Version 1)
Quarter: 2023Q1

REPORT INFORMATION
  Report Type: Spontaneous
  Country: US (occurrence: US)
  Receive Date: 20230323
  Receipt Date: 20230323
  Transmission Date: 20230418
  Serious: Yes (Hospitalization, Other)
  Sender: FDA-Public Use
  Company Number: US-Fresenius Medical Care Renal Therapies Group-FMC-2303-000299

PATIENT
  Age: 75 Year
  Sex: Male
  Weight: 96 kg

DRUGS (3)
  1. DELFLEX WITH DEXTROSE 1.5% LOW MAGNESIUM LOW CALCIUM [Suspect]
     Active Substance: CALCIUM CHLORIDE\DEXTROSE\MAGNESIUM CHLORIDE\SODIUM CHLORIDE\SODIUM LACTATE
     Indication: End stage renal disease
     Dosage: DEXTROSE SOLUTIONS, EXCHANGES 6, FILL VOLUME 2400 ML, DWELL TIME 1.0 HOUR 28 MINUTES, LAST FILL 200
     Route: 033
  2. DELFLEX WITH DEXTROSE 2.5% LOW MAGNESIUM LOW CALCIUM [Suspect]
     Active Substance: CALCIUM CHLORIDE\DEXTROSE\MAGNESIUM CHLORIDE\SODIUM CHLORIDE\SODIUM LACTATE
     Indication: End stage renal disease
     Dosage: DEXTROSE SOLUTIONS, EXCHANGES 6, FILL VOLUME 2400 ML, DWELL TIME 1.0 HOUR 28 MINUTES, LAST FILL 200
     Route: 033
  3. DELFLEX WITH DEXTROSE 4.25% LOW MAGNESIUM LOW CALCIUM [Suspect]
     Active Substance: CALCIUM CHLORIDE\DEXTROSE\MAGNESIUM CHLORIDE\SODIUM CHLORIDE\SODIUM LACTATE
     Indication: End stage renal disease
     Dosage: DEXTROSE SOLUTIONS, EXCHANGES 6, FILL VOLUME 2400 ML, DWELL TIME 1.0 HOUR 28 MINUTES, LAST FILL 200
     Route: 033

REACTIONS (1)
  - Fungal peritonitis [Recovering/Resolving]
